FAERS Safety Report 4413912-X (Version None)
Quarter: 2004Q3

REPORT INFORMATION
  Report Type: 
  Country: None (occurrence: None)
  Receive Date: 20040803
  Receipt Date: 20040722
  Transmission Date: 20050211
  Serious: Yes (Death, Other)
  Sender: FDA-Public Use
  Company Number: GB-BRISTOL-MYERS SQUIBB COMPANY-12647756

PATIENT
  Age: 38 Year
  Sex: Male

DRUGS (4)
  1. STAVUDINE [Suspect]
     Indication: HIV INFECTION
  2. VIRAMUNE [Suspect]
     Indication: HIV INFECTION
  3. LAMIVUDINE [Suspect]
     Indication: HIV INFECTION
  4. ZIDOVUDINE [Suspect]

REACTIONS (3)
  - BUSCHKE-LOWENSTEIN'S TUMOUR [None]
  - IMMUNE RECONSTITUTION SYNDROME [None]
  - SUPERINFECTION [None]
